FAERS Safety Report 10120892 (Version 1)
Quarter: 2014Q2

REPORT INFORMATION
  Report Type: Spontaneous
  Country: US (occurrence: US)
  Receive Date: 20140425
  Receipt Date: 20140425
  Transmission Date: 20141212
  Serious: Yes (Hospitalization)
  Sender: FDA-Public Use
  Company Number: US-BRISTOL-MYERS SQUIBB COMPANY-20641106

PATIENT
  Age: 43 Year
  Sex: Male

DRUGS (7)
  1. BYDUREON [Suspect]
     Indication: TYPE 2 DIABETES MELLITUS
  2. BACLOFEN [Concomitant]
  3. SIMVASTATIN [Concomitant]
  4. LISINOPRIL [Concomitant]
     Dosage: 1DF:20/25 UNIT NOS
  5. METFORMIN [Concomitant]
  6. VITAMIN D [Concomitant]
  7. DILAUDID [Concomitant]

REACTIONS (2)
  - Intervertebral disc protrusion [Unknown]
  - Injection site nodule [Unknown]
